FAERS Safety Report 7597495-1 (Version None)
Quarter: 2011Q3

REPORT INFORMATION
  Report Type: 
  Country: None (occurrence: None)
  Receive Date: 20110708
  Receipt Date: 20110704
  Transmission Date: 20111222
  Serious: Yes (Disabling)
  Sender: FDA-Public Use
  Company Number: PHHO2011CH10157

PATIENT
  Sex: Female

DRUGS (4)
  1. LETROZOLE [Suspect]
     Indication: BREAST CANCER
     Dosage: 2.5 MG, DAILY
     Route: 048
     Dates: start: 20110329, end: 20110507
  2. ESCITALOPRAM [Concomitant]
     Dosage: 10 MG, DAILY
     Dates: start: 20110607
  3. ESCITALOPRAM [Concomitant]
     Indication: DEPRESSION
     Dosage: 10 MG, DAILY
     Dates: start: 20060501
  4. ESCITALOPRAM [Concomitant]
     Dosage: 20 MG, DAILY
     Dates: start: 20070801, end: 20101201

REACTIONS (2)
  - PERSECUTORY DELUSION [None]
  - PSYCHOTIC DISORDER [None]
